FAERS Safety Report 4416905-1 (Version None)
Quarter: 2004Q3

REPORT INFORMATION
  Report Type: 
  Country: None (occurrence: None)
  Receive Date: 20040804
  Receipt Date: 20040804
  Transmission Date: 20050211
  Serious: Yes (Other)
  Sender: FDA-Public Use
  Company Number: None

PATIENT
  Sex: Female
  Weight: 45.3597 kg

DRUGS (2)
  1. ZONEGRAN [Suspect]
     Indication: BULIMIA NERVOSA
     Dosage: 100 MG DAILY ORAL
     Route: 048
     Dates: start: 20040405, end: 20040430
  2. ZONEGRAN [Suspect]
     Indication: OFF LABEL USE
     Dosage: 100 MG DAILY ORAL
     Route: 048
     Dates: start: 20040405, end: 20040430

REACTIONS (2)
  - OFF LABEL USE [None]
  - URTICARIA [None]
